FAERS Safety Report 5089228-8 (Version None)
Quarter: 2006Q3

REPORT INFORMATION
  Report Type: 
  Country: None (occurrence: None)
  Receive Date: 20060825
  Receipt Date: 20060404
  Transmission Date: 20061208
  Serious: Yes (Death, Other)
  Sender: FDA-Public Use
  Company Number: BR-ABBOTT-06P-020-0329971-00

PATIENT
  Age: 35 Year
  Sex: Male

DRUGS (3)
  1. DEPAKOTE [Suspect]
     Indication: EPILEPSY
     Route: 048
  2. DEPAKOTE [Suspect]
     Indication: CEREBROVASCULAR ACCIDENT
  3. LAMOTRIGINE [Concomitant]
     Indication: DRUG USE FOR UNKNOWN INDICATION
     Route: 048

REACTIONS (5)
  - AMMONIA INCREASED [None]
  - COMA [None]
  - ENCEPHALOPATHY [None]
  - SEPSIS [None]
  - THROMBOCYTOPENIA [None]
